FAERS Safety Report 5767837-8 (Version None)
Quarter: 2008Q2

REPORT INFORMATION
  Report Type: 
  Country: None (occurrence: None)
  Receive Date: 20080612
  Receipt Date: 20080610
  Transmission Date: 20081010
  Serious: Yes (Life-Threatening, Hospitalization)
  Sender: FDA-Public Use
  Company Number: PHHO2008GB07310

PATIENT
  Age: 57 Year
  Sex: Female

DRUGS (1)
  1. LETROZOLE [Suspect]
     Indication: DRUG USE FOR UNKNOWN INDICATION
     Dosage: UNK
     Dates: start: 20071121

REACTIONS (1)
  - ANAPHYLACTIC REACTION [None]
